FAERS Safety Report 16373612 (Version 3)
Quarter: 2019Q2

REPORT INFORMATION
  Report Type: Spontaneous
  Country: US (occurrence: US)
  Receive Date: 20190530
  Receipt Date: 20190610
  Transmission Date: 20190711
  Serious: Yes (Other)
  Sender: FDA-Public Use
  Company Number: US-PFIZER INC-2019226373

PATIENT
  Age: 30 Year
  Sex: Female

DRUGS (7)
  1. ETOPOSIDE. [Suspect]
     Active Substance: ETOPOSIDE
     Dosage: LOW-DOSE INDUCTION ETOPOSIDE AND CISPLATIN CHEMOTHERAPY
  2. CYCLOPHOSPHAMIDE. [Suspect]
     Active Substance: CYCLOPHOSPHAMIDE
     Indication: CHORIOCARCINOMA
     Dosage: 600 MG/M2 OVER 30 MINUTES, REPEATED ON ALTERNATING WEEKS
     Route: 042
  3. ETOPOSIDE. [Suspect]
     Active Substance: ETOPOSIDE
     Indication: CHORIOCARCINOMA
     Dosage: 100 MG/M2, CYCLIC (DAY 1 + 2: OVER 30 MINUTES, REPEATED ON ALTERNATING WEEKS)
     Route: 042
  4. FOLINIC ACID [Concomitant]
     Active Substance: LEUCOVORIN
     Dosage: DAY 2: FOLINIC ACID RESCUE
  5. METHOTREXATE SODIUM. [Suspect]
     Active Substance: METHOTREXATE SODIUM
     Indication: CHORIOCARCINOMA
     Dosage: 300 MG/M2 OVER 12 HOURS, REPEATED ON ALTERNATING WEEKS
     Route: 042
  6. DACTINOMYCIN [Suspect]
     Active Substance: DACTINOMYCIN
     Indication: CHORIOCARCINOMA
     Dosage: 0.5 MG, REPEATED ON ALTERNATING WEEKS
     Route: 040
  7. ONCOVIN [Suspect]
     Active Substance: VINCRISTINE SULFATE
     Indication: CHORIOCARCINOMA
     Dosage: DAY 8: 1 MG/M2 ONCOVIN [VINCRISTINE] IV BOLUS, REPEATED ON ALTERNATING WEEKS.
     Route: 040

REACTIONS (2)
  - Menopausal symptoms [Unknown]
  - Febrile neutropenia [Unknown]
